FAERS Safety Report 6972493-7 (Version None)
Quarter: 2010Q3

REPORT INFORMATION
  Report Type: 
  Country: None (occurrence: None)
  Receive Date: 20100909
  Receipt Date: 20100830
  Transmission Date: 20110219
  Serious: Yes (Other)
  Sender: FDA-Public Use
  Company Number: US-BAYER-201024189NA

PATIENT
  Sex: Female

DRUGS (6)
  1. SORAFENIB [Suspect]
     Indication: BREAST CANCER METASTATIC
     Route: 048
     Dates: start: 20100503
  2. VINORELBINE [Suspect]
     Indication: BREAST CANCER METASTATIC
     Route: 042
     Dates: start: 20100503
  3. DIOVAN [Concomitant]
  4. GREEN TEA [Concomitant]
  5. MUSHROOM [Concomitant]
  6. NORVASC [Concomitant]

REACTIONS (3)
  - ARTHRITIS [None]
  - ERYTHEMA [None]
  - JOINT SWELLING [None]
